FAERS Safety Report 14505737 (Version 1)
Quarter: 2018Q1

REPORT INFORMATION
  Report Type: Spontaneous
  Country: US (occurrence: US)
  Receive Date: 20180208
  Receipt Date: 20180208
  Transmission Date: 20180509
  Serious: Yes (Hospitalization)
  Sender: FDA-Public Use
  Company Number: US-PFIZER INC-2017547047

PATIENT
  Age: 67 Year
  Sex: Male
  Weight: 76.66 kg

DRUGS (4)
  1. ROBITUSSIN PEAK COLD MULTI-SYMPTOM COLD [Suspect]
     Active Substance: DEXTROMETHORPHAN HYDROBROMIDE\GUAIFENESIN\PHENYLEPHRINE HYDROCHLORIDE
     Indication: COUGH
     Dosage: UNK
     Dates: start: 20171215
  2. ROBITUSSIN PEAK COLD MULTI-SYMPTOM COLD [Suspect]
     Active Substance: DEXTROMETHORPHAN HYDROBROMIDE\GUAIFENESIN\PHENYLEPHRINE HYDROCHLORIDE
     Indication: NASOPHARYNGITIS
  3. ROBITUSSIN PEAK COLD MULTI-SYMPTOM COLD [Suspect]
     Active Substance: DEXTROMETHORPHAN HYDROBROMIDE\GUAIFENESIN\PHENYLEPHRINE HYDROCHLORIDE
     Indication: PRODUCTIVE COUGH
  4. ROBITUSSIN PEAK COLD MULTI-SYMPTOM COLD [Suspect]
     Active Substance: DEXTROMETHORPHAN HYDROBROMIDE\GUAIFENESIN\PHENYLEPHRINE HYDROCHLORIDE
     Indication: SINUSITIS

REACTIONS (4)
  - Drug ineffective [Recovered/Resolved]
  - Dyspepsia [Recovered/Resolved]
  - Oral discomfort [Recovered/Resolved]
  - Nasal congestion [Unknown]
